FAERS Safety Report 25089406 (Version 2)
Quarter: 2025Q1

REPORT INFORMATION
  Report Type: Report from Study
  Country: CA (occurrence: CA)
  Receive Date: 20250318
  Receipt Date: 20250325
  Transmission Date: 20250409
  Serious: Yes (Death)
  Sender: DAIICHI
  Company Number: CA-DSJP-DS-2025-119969-CA

PATIENT
  Sex: Male

DRUGS (2)
  1. DATOPOTAMAB DERUXTECAN [Suspect]
     Active Substance: DATOPOTAMAB DERUXTECAN
     Indication: Non-small cell lung cancer
     Route: 065
     Dates: start: 20241220, end: 20241220
  2. DATOPOTAMAB DERUXTECAN [Suspect]
     Active Substance: DATOPOTAMAB DERUXTECAN
     Route: 065
     Dates: start: 20250110, end: 20250110

REACTIONS (2)
  - Pulmonary embolism [Fatal]
  - Product distribution issue [Unknown]
